FAERS Safety Report 7767278-8 (Version None)
Quarter: 2011Q3

REPORT INFORMATION
  Report Type: 
  Country: None (occurrence: None)
  Receive Date: 20110922
  Receipt Date: 20110527
  Transmission Date: 20111222
  Serious: No
  Sender: FDA-Public Use
  Company Number: US-ASTRAZENECA-2011SE33189

PATIENT
  Age: 39 Year
  Sex: Female
  Weight: 65.8 kg

DRUGS (3)
  1. CELEXA [Concomitant]
  2. TRAMADOL HCL [Concomitant]
  3. SEROQUEL XR [Suspect]
     Indication: BORDERLINE PERSONALITY DISORDER
     Route: 048
     Dates: start: 20010101, end: 20110525

REACTIONS (6)
  - HEADACHE [None]
  - DRUG DOSE OMISSION [None]
  - ABDOMINAL PAIN UPPER [None]
  - INSOMNIA [None]
  - DRUG WITHDRAWAL SYNDROME [None]
  - TREMOR [None]
